FAERS Safety Report 6358963-3 (Version None)
Quarter: 2009Q3

REPORT INFORMATION
  Report Type: 
  Country: None (occurrence: None)
  Receive Date: 20090914
  Receipt Date: 20090901
  Transmission Date: 20100115
  Serious: Yes (Other)
  Sender: FDA-Public Use
  Company Number: JP-1170805

PATIENT

DRUGS (1)
  1. TRAVATAN Z [Suspect]
     Dosage: OPHTHALMIC
     Route: 047

REACTIONS (3)
  - ANTERIOR CHAMBER INFLAMMATION [None]
  - CORNEAL DEPOSITS [None]
  - DETACHMENT OF RETINAL PIGMENT EPITHELIUM [None]
